FAERS Safety Report 5492262-7 (Version None)
Quarter: 2007Q4

REPORT INFORMATION
  Report Type: 
  Country: None (occurrence: None)
  Receive Date: 20071022
  Receipt Date: 20071012
  Transmission Date: 20080405
  Serious: Yes (Other)
  Sender: FDA-Public Use
  Company Number: HQWYE070806AUG04

PATIENT
  Sex: Female

DRUGS (2)
  1. PREMPRO [Suspect]
  2. PREMARIN [Suspect]
     Dosage: UNKNOWN
     Route: 065

REACTIONS (1)
  - INFLAMMATORY CARCINOMA OF THE BREAST [None]
